FAERS Safety Report 8320998-9 (Version None)
Quarter: 2012Q2

REPORT INFORMATION
  Report Type: 
  Country: None (occurrence: None)
  Receive Date: 20120430
  Receipt Date: 20120420
  Transmission Date: 20120825
  Serious: Yes (Death)
  Sender: FDA-Public Use
  Company Number: KR-MILLENNIUM PHARMACEUTICALS, INC.-2012-02553

PATIENT

DRUGS (6)
  1. ACYCLOVIR [Concomitant]
     Indication: HERPES ZOSTER
     Dosage: 750 MG, UNK
     Route: 042
     Dates: start: 20110708, end: 20110712
  2. VELCADE [Suspect]
     Indication: MULTIPLE MYELOMA
     Dosage: 1.3 MG/M2, UNK
     Route: 065
     Dates: start: 20110602, end: 20110623
  3. DEXAMETHASONE [Concomitant]
     Indication: MULTIPLE MYELOMA
     Dosage: 20 MG, UNK
     Route: 042
     Dates: start: 20110602, end: 20110627
  4. MEGESTROL ACETATE [Concomitant]
     Indication: GENERAL PHYSICAL HEALTH DETERIORATION
     Dosage: 20 ML, UNK
     Dates: start: 20110703, end: 20110712
  5. LEVOFLOXACIN [Concomitant]
     Indication: PROPHYLAXIS
     Dosage: 500 MG, UNK
     Route: 048
     Dates: start: 20110601, end: 20110712
  6. GABAPENTIN [Concomitant]
     Indication: HYPOAESTHESIA
     Dosage: 600 MG, UNK
     Route: 042
     Dates: start: 20090716, end: 20110623

REACTIONS (1)
  - MULTIPLE MYELOMA [None]
